FAERS Safety Report 18633894 (Version 1)
Quarter: 2020Q4

REPORT INFORMATION
  Report Type: Spontaneous
  Country: US (occurrence: US)
  Receive Date: 20201218
  Receipt Date: 20201218
  Transmission Date: 20210114
  Serious: No
  Sender: FDA-Public Use
  Company Number: None

PATIENT
  Age: 74 Year
  Sex: Male

DRUGS (1)
  1. EXENATIDE (EXENATIDE 2MG/PEN INJ, SUSP, SA) [Suspect]
     Active Substance: EXENATIDE
     Route: 058
     Dates: start: 20200205, end: 20200707

REACTIONS (1)
  - Injection site haemorrhage [None]

NARRATIVE: CASE EVENT DATE: 20200701
